FAERS Safety Report 7400297-X (Version None)
Quarter: 2011Q2

REPORT INFORMATION
  Report Type: 
  Country: None (occurrence: None)
  Receive Date: 20110407
  Receipt Date: 20110329
  Transmission Date: 20111010
  Serious: Yes (Death, Other)
  Sender: FDA-Public Use
  Company Number: GB-US-EMD SERONO, INC.-230037M09GBR

PATIENT
  Sex: Female

DRUGS (3)
  1. REBIF [Suspect]
     Indication: PRODUCT USED FOR UNKNOWN INDICATION
     Route: 058
     Dates: start: 20050601
  2. CAPECITABINE [Concomitant]
     Indication: DISEASE PROGRESSION
     Dates: end: 20090701
  3. DOCETAXEL [Concomitant]
     Indication: DISEASE PROGRESSION
     Dates: end: 20090701

REACTIONS (2)
  - METASTASES TO LIVER [None]
  - METASTASES TO BONE [None]
